FAERS Safety Report 10143681 (Version 1)
Quarter: 2014Q2

REPORT INFORMATION
  Report Type: Spontaneous
  Country: US (occurrence: US)
  Receive Date: 20140430
  Receipt Date: 20140430
  Transmission Date: 20141212
  Serious: No
  Sender: FDA-Public Use
  Company Number: US-PFIZER INC-2014118739

PATIENT
  Age: 65 Year
  Sex: Female
  Weight: 108 kg

DRUGS (2)
  1. NEURONTIN [Suspect]
     Indication: DIABETIC NEUROPATHY
     Dosage: 4800 MG, DAILY
  2. NEURONTIN [Suspect]
     Dosage: 1400 MG, DAILY
     Dates: start: 201404

REACTIONS (2)
  - Drug ineffective [Unknown]
  - Pain [Unknown]
